FAERS Safety Report 5529209-0 (Version None)
Quarter: 2007Q4

REPORT INFORMATION
  Report Type: 
  Country: None (occurrence: None)
  Receive Date: 20071129
  Receipt Date: 20070606
  Transmission Date: 20080405
  Serious: No
  Sender: FDA-Public Use
  Company Number: A0654386A

PATIENT
  Age: 14 Year
  Sex: Male

DRUGS (1)
  1. WELLBUTRIN SR [Suspect]
     Dosage: 100MG PER DAY
     Route: 048
     Dates: start: 20070401, end: 20070601

REACTIONS (2)
  - ARTHRALGIA [None]
  - RASH [None]
